FAERS Safety Report 5508666-X (Version None)
Quarter: 2007Q4

REPORT INFORMATION
  Report Type: 
  Country: None (occurrence: None)
  Receive Date: 20071107
  Receipt Date: 20071029
  Transmission Date: 20080405
  Serious: Yes (Other)
  Sender: FDA-Public Use
  Company Number: US-AMGEN-QUU246480

PATIENT
  Sex: Male
  Weight: 93.5 kg

DRUGS (6)
  1. ENBREL [Suspect]
     Indication: PSORIATIC ARTHROPATHY
     Route: 058
     Dates: start: 20041001, end: 20070901
  2. ENBREL [Suspect]
     Indication: SPONDYLITIS
  3. METHOTREXATE [Concomitant]
     Indication: PSORIATIC ARTHROPATHY
     Dates: start: 19950801
  4. PREDNISONE [Concomitant]
     Dates: start: 19950101
  5. FOLIC ACID [Concomitant]
     Dates: start: 19950101
  6. MOBIC [Concomitant]
     Dates: start: 20050101

REACTIONS (2)
  - ATRIAL FIBRILLATION [None]
  - CARDIOMYOPATHY [None]
